FAERS Safety Report 7218489-1 (Version None)
Quarter: 2011Q1

REPORT INFORMATION
  Report Type: 
  Country: None (occurrence: None)
  Receive Date: 20110110
  Receipt Date: 20110106
  Transmission Date: 20110831
  Serious: Yes (Other)
  Sender: FDA-Public Use
  Company Number: JP-PFIZER INC-2010109696

PATIENT
  Age: 85 Year
  Sex: Female

DRUGS (11)
  1. LOXONIN [Concomitant]
     Dosage: UNK
     Route: 048
  2. PRAVASTATIN SODIUM [Concomitant]
     Dosage: UNK
     Dates: end: 20070401
  3. AMLODIPINE [Concomitant]
     Dosage: UNK
  4. TIZANIDINE HYDROCHLORIDE [Concomitant]
     Dosage: UNK
  5. PLAVIX [Concomitant]
     Dosage: UNK
  6. ASPIRIN [Concomitant]
     Dosage: UNK
  7. LIMAPROST [Concomitant]
     Dosage: UNK
     Route: 048
  8. TAKEPRON [Concomitant]
     Dosage: UNK
  9. ALENDRONATE SODIUM [Concomitant]
     Dosage: UNK
  10. NATEGLINIDE [Concomitant]
     Dosage: UNK
  11. LIPITOR [Suspect]
     Indication: HYPERLIPIDAEMIA
     Dosage: UNK
     Route: 048
     Dates: start: 20070401, end: 20100831

REACTIONS (1)
  - HYPONATRAEMIA [None]
